FAERS Safety Report 19804641 (Version 1)
Quarter: 2021Q3

REPORT INFORMATION
  Report Type: Report from Study
  Country: FR (occurrence: FR)
  Receive Date: 20210908
  Receipt Date: 20210908
  Transmission Date: 20211014
  Serious: Yes (Death)
  Sender: FDA-Public Use
  Company Number: FR-MYLANLABS-2021M1059751

PATIENT
  Sex: Female

DRUGS (2)
  1. CARBOPLATIN. [Suspect]
     Active Substance: CARBOPLATIN
     Indication: OVARIAN CANCER
     Dosage: DOSE: AREA UNDER THE CURVE (AUC) 2 MG/ML MIN, ON DAYS 1, 8 AND 15 EVERY 4 WEEKS
     Route: 042
  2. PACLITAXEL. [Suspect]
     Active Substance: PACLITAXEL
     Indication: OVARIAN CANCER
     Dosage: 60 MILLIGRAM/SQ. METER RECEIVED ON DAYS 1, 8 AND 15 EVERY 4 WEEKS
     Route: 042

REACTIONS (2)
  - Intestinal perforation [Fatal]
  - Septic shock [Fatal]
